FAERS Safety Report 9027065 (Version 2)
Quarter: 2013Q1

REPORT INFORMATION
  Report Type: Spontaneous
  Country: US (occurrence: US)
  Receive Date: 20130123
  Receipt Date: 20130301
  Transmission Date: 20140127
  Serious: Yes (Hospitalization, Other)
  Sender: FDA-Public Use
  Company Number: US-ASTELLAS-2013US000758

PATIENT
  Age: 84 None
  Sex: Male

DRUGS (1)
  1. XTANDI [Suspect]
     Indication: PROSTATE CANCER
     Dosage: 160 MG, UID/QD
     Route: 048
     Dates: start: 20121022, end: 20130118

REACTIONS (8)
  - Atrial flutter [Recovered/Resolved]
  - Oesophageal candidiasis [Unknown]
  - Urinary tract infection [Unknown]
  - Cancer pain [Recovered/Resolved]
  - Malignant neoplasm progression [Unknown]
  - Asthenia [Recovering/Resolving]
  - Constipation [Unknown]
  - Cough [Unknown]
